FAERS Safety Report 12856699 (Version 1)
Quarter: 2016Q4

REPORT INFORMATION
  Report Type: Spontaneous
  Country: US (occurrence: US)
  Receive Date: 20161018
  Receipt Date: 20161018
  Transmission Date: 20170207
  Serious: Yes (Disabling)
  Sender: FDA-Public Use
  Company Number: None

PATIENT
  Age: 64 Year
  Sex: Male
  Weight: 86.18 kg

DRUGS (5)
  1. KETALAR [Suspect]
     Active Substance: KETAMINE HYDROCHLORIDE
     Indication: DEPRESSION
     Dosage: FREQUENCY - EVERY 6 DAYS?          QUANTITY:ONE LITER?
     Route: 042
     Dates: start: 20131111, end: 20140303
  2. CHLORDIAZEPOXIDE. [Concomitant]
     Active Substance: CHLORDIAZEPOXIDE
  3. ESTAZOLAM. [Concomitant]
     Active Substance: ESTAZOLAM
  4. CLONAZEPAM. [Concomitant]
     Active Substance: CLONAZEPAM
  5. CLONIDINE. [Concomitant]
     Active Substance: CLONIDINE

REACTIONS (1)
  - Mania [None]
